FAERS Safety Report 20691775 (Version 1)
Quarter: 2022Q2

REPORT INFORMATION
  Report Type: Spontaneous
  Country: JP (occurrence: JP)
  Receive Date: 20220408
  Receipt Date: 20220408
  Transmission Date: 20220721
  Serious: Yes (Death)
  Sender: FDA-Public Use
  Company Number: JP-BAUSCH-BL-2022-008493

PATIENT
  Age: 73 Year
  Sex: Male

DRUGS (16)
  1. DEXAMETHASONE [Suspect]
     Active Substance: DEXAMETHASONE
     Indication: Human T-cell lymphotropic virus type I infection
     Route: 065
  2. DEXAMETHASONE [Suspect]
     Active Substance: DEXAMETHASONE
     Indication: COVID-19
  3. MEROPENEM [Suspect]
     Active Substance: MEROPENEM
     Indication: Human T-cell lymphotropic virus type I infection
     Dosage: 1 G THREE TIMES A DAY
     Route: 042
  4. MEROPENEM [Suspect]
     Active Substance: MEROPENEM
     Indication: COVID-19
  5. PREDNISOLONE [Suspect]
     Active Substance: PREDNISOLONE
     Indication: Human T-cell lymphotropic virus type I infection
     Dosage: 10 MG DAILY
     Route: 065
  6. PREDNISOLONE [Suspect]
     Active Substance: PREDNISOLONE
     Indication: COVID-19
  7. CICLESONIDE [Suspect]
     Active Substance: CICLESONIDE
     Indication: COVID-19
     Route: 065
  8. PIPERACILLIN SODIUM\TAZOBACTAM SODIUM [Suspect]
     Active Substance: PIPERACILLIN SODIUM\TAZOBACTAM SODIUM
     Indication: Pneumonia bacterial
     Route: 065
  9. PIPERACILLIN SODIUM\TAZOBACTAM SODIUM [Suspect]
     Active Substance: PIPERACILLIN SODIUM\TAZOBACTAM SODIUM
     Indication: Herpes simplex
  10. VANCOMYCIN [Suspect]
     Active Substance: VANCOMYCIN
     Indication: Herpes simplex
     Dosage: (TARGETING TROUGH CONCENTRATIONS OF 15 TO 20 MG/L),
     Route: 065
  11. SULFAMETHOXAZOLE\TRIMETHOPRIM [Suspect]
     Active Substance: SULFAMETHOXAZOLE\TRIMETHOPRIM
     Indication: Herpes simplex
     Route: 065
  12. REMDESIVIR [Concomitant]
     Active Substance: REMDESIVIR
     Indication: Human T-cell lymphotropic virus type I infection
     Dosage: 200 MG DAILY
     Route: 065
  13. REMDESIVIR [Concomitant]
     Active Substance: REMDESIVIR
     Indication: COVID-19
     Dosage: 100 MG DAILY
     Route: 065
  14. FAVIPIRAVIR [Concomitant]
     Active Substance: FAVIPIRAVIR
     Indication: COVID-19
     Route: 065
  15. FAVIPIRAVIR [Concomitant]
     Active Substance: FAVIPIRAVIR
  16. ACYCLOVIR [Concomitant]
     Active Substance: ACYCLOVIR
     Indication: Herpes simplex

REACTIONS (1)
  - Systemic candida [Fatal]
